FAERS Safety Report 8232969-1 (Version None)
Quarter: 2012Q1

REPORT INFORMATION
  Report Type: 
  Country: None (occurrence: None)
  Receive Date: 20120325
  Receipt Date: 20120315
  Transmission Date: 20120608
  Serious: Yes (Hospitalization)
  Sender: FDA-Public Use
  Company Number: MY-BRISTOL-MYERS SQUIBB COMPANY-16389330

PATIENT
  Age: 55 Year
  Sex: Female

DRUGS (4)
  1. ALCOHOL [Concomitant]
  2. ABILIFY [Suspect]
     Indication: SCHIZOPHRENIA
     Dosage: 6MG15DEC-21DEC11;7D,DOSE INCD 12MG;22DEC11-21JAN12;31D,22JAN-26JAN;5D;24MG;27JAN-01FEB12;6D;18MG
     Route: 048
     Dates: start: 20111215, end: 20120201
  3. NIFEDIPINE [Concomitant]
     Dates: start: 20070101
  4. HYDROCHLOROTHIAZIDE [Concomitant]
     Dates: start: 20070101

REACTIONS (1)
  - SCHIZOPHRENIA [None]
